FAERS Safety Report 5097589-9 (Version None)
Quarter: 2006Q3

REPORT INFORMATION
  Report Type: 
  Country: None (occurrence: None)
  Receive Date: 20060901
  Receipt Date: 20060823
  Transmission Date: 20061208
  Serious: Yes (Hospitalization)
  Sender: FDA-Public Use
  Company Number: TCI2006A03299

PATIENT
  Age: 61 Year
  Sex: Male

DRUGS (8)
  1. ACTOS [Suspect]
     Indication: DIABETES MELLITUS
     Dosage: 15 MG (15 MG, 1 IN 1D) PER ORAL
     Route: 048
     Dates: start: 20060510, end: 20060510
  2. TAKEPRON OD TABLETS 15 (LANSOPRAZOLE) [Concomitant]
  3. LASIX [Concomitant]
  4. NORVASC [Concomitant]
  5. SYMMETREL [Concomitant]
  6. MAGNESIUM OXIDE [Concomitant]
  7. PANTOSIN (PANTETHINE) [Concomitant]
  8. NITRODERM [Concomitant]

REACTIONS (6)
  - ABDOMINAL DISTENSION [None]
  - BLOOD PRESSURE DECREASED [None]
  - CARDIAC FAILURE [None]
  - HYPOTENSION [None]
  - INTESTINAL OBSTRUCTION [None]
  - URINE OUTPUT DECREASED [None]
